FAERS Safety Report 12173709 (Version 2)
Quarter: 2016Q1

REPORT INFORMATION
  Report Type: Spontaneous
  Country: US (occurrence: US)
  Receive Date: 20160314
  Receipt Date: 20160324
  Transmission Date: 20160526
  Serious: Yes (Other)
  Sender: FDA-Public Use
  Company Number: US-GLAXOSMITHKLINE-US2016034479

PATIENT
  Age: 51 Year
  Sex: Female

DRUGS (1)
  1. SENSODYNE REPAIR AND PROTECT WHITENING [Suspect]
     Active Substance: STANNOUS FLUORIDE
     Indication: SENSITIVITY OF TEETH
     Dosage: UNK
     Dates: start: 20160301, end: 20160304

REACTIONS (6)
  - Oral pain [Unknown]
  - Neuralgia [Unknown]
  - Tooth abscess [Not Recovered/Not Resolved]
  - Drug ineffective [Unknown]
  - Eating disorder [Unknown]
  - Toothache [Unknown]

NARRATIVE: CASE EVENT DATE: 20160304
